FAERS Safety Report 20868644 (Version 4)
Quarter: 2022Q4

REPORT INFORMATION
  Report Type: Spontaneous
  Country: US (occurrence: US)
  Receive Date: 20220524
  Receipt Date: 20221230
  Transmission Date: 20230112
  Serious: Yes (Other)
  Sender: FDA-Public Use
  Company Number: US-PFIZER INC-202200318598

PATIENT
  Age: 63 Year
  Sex: Female

DRUGS (2)
  1. XELJANZ [Suspect]
     Active Substance: TOFACITINIB CITRATE
     Indication: Colitis ulcerative
     Dosage: 5 MG, 2X/DAY
     Route: 048
     Dates: start: 20200801
  2. XELJANZ [Suspect]
     Active Substance: TOFACITINIB CITRATE
     Indication: Rheumatoid arthritis

REACTIONS (10)
  - Large intestinal ulcer [Recovering/Resolving]
  - Large intestine polyp [Unknown]
  - Inflammation [Unknown]
  - Infrequent bowel movements [Recovering/Resolving]
  - Constipation [Unknown]
  - Neck pain [Not Recovered/Not Resolved]
  - Arthralgia [Unknown]
  - Back pain [Not Recovered/Not Resolved]
  - Colitis [Unknown]
  - Stress [Unknown]

NARRATIVE: CASE EVENT DATE: 20220323
